FAERS Safety Report 15879458 (Version 1)
Quarter: 2019Q1

REPORT INFORMATION
  Report Type: Report from Study
  Country: US (occurrence: US)
  Receive Date: 20190128
  Receipt Date: 20190128
  Transmission Date: 20190417
  Serious: No
  Sender: FDA-Public Use
  Company Number: US-IPSEN BIOPHARMACEUTICALS, INC.-2019-01126

PATIENT
  Sex: Male

DRUGS (2)
  1. INCRELEX [Suspect]
     Active Substance: MECASERMIN
     Indication: BODY HEIGHT BELOW NORMAL
     Dosage: 3 UNITS, UPPER ARM, THIGH, BUTTOCKS OR ABDOMEN
     Route: 058
  2. INCRELEX [Suspect]
     Active Substance: MECASERMIN
     Indication: OFF LABEL USE

REACTIONS (2)
  - Adverse drug reaction [Unknown]
  - Off label use [Unknown]
